FAERS Safety Report 13872441 (Version 1)
Quarter: 2017Q3

REPORT INFORMATION
  Report Type: Spontaneous
  Country: US (occurrence: US)
  Receive Date: 20170816
  Receipt Date: 20170816
  Transmission Date: 20171127
  Serious: No
  Sender: FDA-Public Use
  Company Number: US-PFIZER INC-2017347969

PATIENT
  Sex: Female

DRUGS (4)
  1. METHOTREXATE SODIUM. [Suspect]
     Active Substance: METHOTREXATE SODIUM
     Dosage: 2.5 MG, UNK
  2. METHYLPREDNISOLONE ACETATE. [Suspect]
     Active Substance: METHYLPREDNISOLONE ACETATE
     Dosage: UNK
     Dates: start: 201611
  3. LIPITOR [Suspect]
     Active Substance: ATORVASTATIN CALCIUM
     Dosage: 10 MG, UNK
  4. TESSALON [Suspect]
     Active Substance: BENZONATATE
     Dosage: UNK
     Dates: start: 201611

REACTIONS (6)
  - Back pain [Unknown]
  - Blood alkaline phosphatase increased [Unknown]
  - Joint swelling [Unknown]
  - Paraesthesia [Unknown]
  - Peripheral swelling [Unknown]
  - Arthralgia [Unknown]
